FAERS Safety Report 9407637 (Version 1)
Quarter: 2013Q1

REPORT INFORMATION
  Report Type: Spontaneous
  Country: TW (occurrence: None)
  Receive Date: 20130312
  Receipt Date: 20130312
  Transmission Date: 20140127
  Serious: Yes (Hospitalization)
  Sender: FDA-Public Use
  Company Number: ALLO20130006

PATIENT
  Age: 65 Year
  Sex: Male

DRUGS (1)
  1. ALLOPURINOL TABLETS (ALLOPURINOL) (TABLETS) [Suspect]
     Indication: HYPERURICAEMIA
     Route: 048

REACTIONS (1)
  - Drug reaction with eosinophilia and systemic symptoms [None]
